FAERS Safety Report 5370973-1 (Version None)
Quarter: 2007Q2

REPORT INFORMATION
  Report Type: 
  Country: None (occurrence: None)
  Receive Date: 20070626
  Receipt Date: 20070614
  Transmission Date: 20071010
  Serious: Yes (Other)
  Sender: FDA-Public Use
  Company Number: GB-PFIZER INC-2007034944

PATIENT
  Age: 59 Year
  Sex: Male
  Weight: 90 kg

DRUGS (5)
  1. SUTENT [Suspect]
     Indication: METASTATIC RENAL CELL CARCINOMA
     Dates: start: 20070323, end: 20070420
  2. SUTENT [Suspect]
  3. CALCIUM CHLORIDE [Concomitant]
  4. VITAMIN D [Concomitant]
  5. CALCICHEW [Concomitant]
     Route: 048

REACTIONS (2)
  - BLOOD CALCIUM DECREASED [None]
  - TETANY [None]
